FAERS Safety Report 17004472 (Version 6)
Quarter: 2020Q1

REPORT INFORMATION
  Report Type: Spontaneous
  Country: US (occurrence: US)
  Receive Date: 20191107
  Receipt Date: 20200129
  Transmission Date: 20200409
  Serious: No
  Sender: FDA-Public Use
  Company Number: US-PFIZER INC-2019483443

PATIENT
  Age: 7 Month
  Sex: Male
  Weight: 8 kg

DRUGS (5)
  1. VASELINE [PARAFFIN] [Concomitant]
     Active Substance: PARAFFIN
     Dosage: UNK
     Dates: start: 201908
  2. AQUAFOR [Concomitant]
     Dosage: UNK
     Dates: start: 201908
  3. HYDROCORTISONE. [Concomitant]
     Active Substance: HYDROCORTISONE
     Indication: DERMATITIS ATOPIC
     Dosage: UNK
     Dates: start: 201910
  4. EUCRISA [Suspect]
     Active Substance: CRISABOROLE
     Indication: DERMATITIS ATOPIC
     Dosage: 10 MG, 2X/DAY
     Dates: start: 20191025, end: 20191113
  5. TRIAMCINOLONE [Concomitant]
     Active Substance: TRIAMCINOLONE
     Indication: DERMATITIS ATOPIC
     Dosage: UNK
     Dates: start: 201910

REACTIONS (6)
  - Application site pain [Recovered/Resolved]
  - Off label use [Unknown]
  - Product use issue [Unknown]
  - Dry skin [Unknown]
  - Application site discomfort [Recovered/Resolved]
  - Drug ineffective [Unknown]
